FAERS Safety Report 9225822 (Version 3)
Quarter: 2013Q4

REPORT INFORMATION
  Report Type: Spontaneous
  Country: JP (occurrence: JP)
  Receive Date: 20130411
  Receipt Date: 20131227
  Transmission Date: 20140711
  Serious: Yes (Other)
  Sender: FDA-Public Use
  Company Number: JP-JNJFOC-20130403512

PATIENT
  Age: 52 Year
  Sex: Female
  Weight: 46 kg

DRUGS (8)
  1. TRAMCET [Suspect]
     Indication: OCCUPATIONAL EXPOSURE TO PRODUCT
     Route: 055
     Dates: start: 20121220, end: 20121220
  2. CELECOX [Concomitant]
     Indication: OCCUPATIONAL EXPOSURE TO PRODUCT
     Route: 055
  3. TOFISOPAM [Concomitant]
     Indication: OCCUPATIONAL EXPOSURE TO PRODUCT
     Route: 055
  4. SODIUM RABEPRAZOLE [Concomitant]
     Indication: OCCUPATIONAL EXPOSURE TO PRODUCT
     Route: 055
  5. XYZAL [Concomitant]
     Indication: OCCUPATIONAL EXPOSURE TO PRODUCT
     Route: 055
  6. LEXAPRO [Concomitant]
     Indication: OCCUPATIONAL EXPOSURE TO PRODUCT
     Route: 055
  7. MYSLEE [Concomitant]
     Indication: OCCUPATIONAL EXPOSURE TO PRODUCT
     Route: 055
  8. ROHYPNOL [Concomitant]
     Indication: OCCUPATIONAL EXPOSURE TO PRODUCT
     Route: 055

REACTIONS (4)
  - Drug eruption [Recovered/Resolved]
  - Erythema multiforme [Recovered/Resolved]
  - Accidental exposure to product [Unknown]
  - Wrong technique in drug usage process [Unknown]
